FAERS Safety Report 25535530 (Version 1)
Quarter: 2025Q3

REPORT INFORMATION
  Report Type: Spontaneous
  Country: US (occurrence: US)
  Receive Date: 20250709
  Receipt Date: 20250709
  Transmission Date: 20251021
  Serious: No
  Sender: BOTANIX PHARMACEUTICALS
  Company Number: US-BOTANIX PHARMACEUTICALS-2025BOT00135

PATIENT
  Sex: Male

DRUGS (2)
  1. SOFDRA [Suspect]
     Active Substance: SOFPIRONIUM BROMIDE
     Route: 061
     Dates: end: 20250429
  2. SOFDRA [Suspect]
     Active Substance: SOFPIRONIUM BROMIDE
     Dosage: APPLY 1 APPLICATION TO EACH UNDERARM ONCE NIGHTLY AT BEDTIME
     Route: 061
     Dates: start: 20250430

REACTIONS (2)
  - Drug ineffective [Unknown]
  - Intentional product misuse [Recovered/Resolved]
